FAERS Safety Report 23069245 (Version 3)
Quarter: 2023Q4

REPORT INFORMATION
  Report Type: Spontaneous
  Country: JP (occurrence: JP)
  Receive Date: 20231016
  Receipt Date: 20231212
  Transmission Date: 20240109
  Serious: Yes (Hospitalization)
  Sender: FDA-Public Use
  Company Number: JP-OTSUKA-2023_026546

PATIENT
  Age: 8 Decade
  Sex: Male

DRUGS (1)
  1. REXULTI [Suspect]
     Active Substance: BREXPIPRAZOLE
     Indication: Schizophrenia
     Dosage: UNK
     Route: 048
     Dates: start: 201803

REACTIONS (5)
  - Affect lability [Recovered/Resolved]
  - Persecutory delusion [Recovered/Resolved]
  - Incoherent [Recovered/Resolved]
  - Extrapyramidal disorder [Unknown]
  - Therapeutic product effect incomplete [Unknown]

NARRATIVE: CASE EVENT DATE: 20221101
